FAERS Safety Report 10379959 (Version 1)
Quarter: 2014Q3

REPORT INFORMATION
  Report Type: Report from Study
  Country: US (occurrence: US)
  Receive Date: 20140813
  Receipt Date: 20140813
  Transmission Date: 20150326
  Serious: Yes (Hospitalization)
  Sender: FDA-Public Use
  Company Number: US-ABBVIE-14K-163-1269594-00

PATIENT
  Age: 49 Year
  Sex: Female
  Weight: 163.44 kg

DRUGS (5)
  1. TRAMADOL [Concomitant]
     Active Substance: TRAMADOL
     Indication: RHEUMATOID ARTHRITIS
  2. HUMIRA [Suspect]
     Active Substance: ADALIMUMAB
     Indication: PSORIATIC ARTHROPATHY
     Dates: start: 2013, end: 201407
  3. HUMIRA [Suspect]
     Active Substance: ADALIMUMAB
     Dates: start: 20140729, end: 20140729
  4. HUMIRA [Suspect]
     Active Substance: ADALIMUMAB
     Dates: start: 2014
  5. LISINOPRIL. [Concomitant]
     Active Substance: LISINOPRIL
     Indication: HYPERTENSION

REACTIONS (7)
  - Pain [Recovered/Resolved]
  - Back pain [Recovered/Resolved]
  - Exostosis [Recovered/Resolved]
  - Thrombosis [Recovering/Resolving]
  - Extra dose administered [Recovered/Resolved]
  - Arthralgia [Recovered/Resolved]
  - Ligament sprain [Recovered/Resolved]

NARRATIVE: CASE EVENT DATE: 20140713
